FAERS Safety Report 23964041 (Version 1)
Quarter: 2024Q2

REPORT INFORMATION
  Report Type: Spontaneous
  Country: CA (occurrence: CA)
  Receive Date: 20240611
  Receipt Date: 20240611
  Transmission Date: 20240716
  Serious: Yes (Other)
  Sender: FDA-Public Use
  Company Number: CA-NOVOPROD-1235451

PATIENT

DRUGS (4)
  1. OZEMPIC [Suspect]
     Active Substance: SEMAGLUTIDE
     Indication: Type 1 diabetes mellitus
     Dosage: UNK
     Dates: start: 202212
  2. INSULIN NOS [Concomitant]
     Active Substance: INSULIN NOS
     Indication: Product used for unknown indication
     Dosage: 20 UNITS
  3. INSULIN NOS [Concomitant]
     Active Substance: INSULIN NOS
     Dosage: 12 UNITS AT NIGHT
  4. INSULIN NOS [Concomitant]
     Active Substance: INSULIN NOS
     Dosage: DOWN TO USING HALF

REACTIONS (4)
  - Eye haemorrhage [Unknown]
  - Diabetes mellitus inadequate control [Unknown]
  - Weight decreased [Unknown]
  - Off label use [Unknown]
